FAERS Safety Report 24740962 (Version 5)
Quarter: 2025Q2

REPORT INFORMATION
  Report Type: Spontaneous
  Country: US (occurrence: US)
  Receive Date: 20241217
  Receipt Date: 20250622
  Transmission Date: 20250716
  Serious: No
  Sender: SANOFI AVENTIS
  Company Number: US-SA-2024SA370175

PATIENT
  Age: 57 Year
  Sex: Male
  Weight: 63.64 kg

DRUGS (8)
  1. ALPROLIX [Suspect]
     Active Substance: EFTRENONACOG ALFA
     Indication: Factor IX deficiency
     Dosage: 4600 IU, QW
     Route: 042
     Dates: start: 201207
  2. ALPROLIX [Suspect]
     Active Substance: EFTRENONACOG ALFA
     Indication: Factor IX deficiency
     Dosage: 4600 IU, QW
     Route: 042
     Dates: start: 201207
  3. ALPROLIX [Suspect]
     Active Substance: EFTRENONACOG ALFA
     Route: 042
     Dates: start: 201207
  4. ALPROLIX [Suspect]
     Active Substance: EFTRENONACOG ALFA
     Route: 042
     Dates: start: 201207
  5. ALPROLIX [Suspect]
     Active Substance: EFTRENONACOG ALFA
     Dosage: 3000 U, QW
     Route: 042
  6. ALPROLIX [Suspect]
     Active Substance: EFTRENONACOG ALFA
     Dosage: 3000 U, QW
     Route: 042
  7. ALPROLIX [Suspect]
     Active Substance: EFTRENONACOG ALFA
     Dosage: 1600 U, QW
     Route: 042
  8. ALPROLIX [Suspect]
     Active Substance: EFTRENONACOG ALFA
     Dosage: 1600 U, QW
     Route: 042

REACTIONS (4)
  - Haemorrhage [Not Recovered/Not Resolved]
  - Weight decreased [Unknown]
  - Traumatic haemorrhage [Not Recovered/Not Resolved]
  - Haemorrhage [Unknown]

NARRATIVE: CASE EVENT DATE: 20241201
